FAERS Safety Report 14496108 (Version 1)
Quarter: 2018Q1

REPORT INFORMATION
  Report Type: Spontaneous
  Country: US (occurrence: US)
  Receive Date: 20180207
  Receipt Date: 20180207
  Transmission Date: 20180509
  Serious: No
  Sender: FDA-Public Use
  Company Number: US-BRISTOL-MYERS SQUIBB COMPANY-BMS-2018-009598

PATIENT
  Age: 87 Year
  Sex: Male
  Weight: 113.3 kg

DRUGS (1)
  1. ELIQUIS [Suspect]
     Active Substance: APIXABAN
     Indication: CEREBROVASCULAR ACCIDENT PROPHYLAXIS
     Dosage: 2.5 MG, BID
     Route: 048
     Dates: start: 201708

REACTIONS (7)
  - Rash [Unknown]
  - Fall [Unknown]
  - Muscular weakness [Unknown]
  - Irritability [Unknown]
  - Pruritus [Unknown]
  - Heart rate irregular [Unknown]
  - Swelling face [Unknown]
